FAERS Safety Report 24376113 (Version 1)
Quarter: 2024Q3

REPORT INFORMATION
  Report Type: Spontaneous
  Country: US (occurrence: None)
  Receive Date: 20240926
  Receipt Date: 20240926
  Transmission Date: 20241017
  Serious: Yes (Hospitalization)
  Sender: Public
  Company Number: None

PATIENT
  Age: 80 Year
  Sex: Male
  Weight: 66 kg

DRUGS (1)
  1. BACLOFEN [Suspect]
     Active Substance: BACLOFEN
     Indication: Hiccups
     Dates: start: 20230907, end: 20230914

REACTIONS (6)
  - Confusional state [None]
  - Mental status changes [None]
  - Fall [None]
  - Transient ischaemic attack [None]
  - Dementia [None]
  - Urinary tract infection [None]

NARRATIVE: CASE EVENT DATE: 20230912
